FAERS Safety Report 10370411 (Version 1)
Quarter: 2014Q3

REPORT INFORMATION
  Report Type: Spontaneous
  Country: US (occurrence: None)
  Receive Date: 20140805
  Receipt Date: 20140805
  Transmission Date: 20150326
  Serious: Yes (Other)
  Sender: FDA-Public Use
  Company Number: 2014-US-009671

PATIENT
  Age: 35 Year
  Sex: Male

DRUGS (3)
  1. SODIUM OXYBATE [Suspect]
     Active Substance: SODIUM OXYBATE
     Indication: SLEEP APNOEA SYNDROME
     Route: 048
     Dates: start: 2012
  2. SODIUM OXYBATE [Suspect]
     Active Substance: SODIUM OXYBATE
     Indication: CATAPLEXY
     Route: 048
     Dates: start: 2012
  3. SODIUM OXYBATE [Suspect]
     Active Substance: SODIUM OXYBATE
     Indication: NARCOLEPSY
     Route: 048
     Dates: start: 2012

REACTIONS (6)
  - Apnoea [None]
  - Sleep talking [None]
  - Sleep-related eating disorder [None]
  - Condition aggravated [None]
  - Somnambulism [None]
  - Petit mal epilepsy [None]
